FAERS Safety Report 24464897 (Version 1)
Quarter: 2024Q4

REPORT INFORMATION
  Report Type: Spontaneous
  Country: US (occurrence: US)
  Receive Date: 20241018
  Receipt Date: 20241018
  Transmission Date: 20250114
  Serious: No
  Sender: ROCHE
  Company Number: US-ROCHE-3503886

PATIENT
  Age: 16 Year
  Sex: Female

DRUGS (2)
  1. XOLAIR [Suspect]
     Active Substance: OMALIZUMAB
     Indication: Urticaria
     Dosage: PFS 150MG/ML
     Route: 058
  2. XOLAIR [Suspect]
     Active Substance: OMALIZUMAB

REACTIONS (10)
  - Mouth swelling [Unknown]
  - Cheilitis [Unknown]
  - Pyrexia [Unknown]
  - Viral infection [Unknown]
  - Tongue ulceration [Unknown]
  - Off label use [Unknown]
  - Autoimmune thyroiditis [Unknown]
  - Headache [Unknown]
  - Pain [Unknown]
  - Urticaria [Unknown]
